FAERS Safety Report 5494085-1 (Version None)
Quarter: 2007Q4

REPORT INFORMATION
  Report Type: 
  Country: None (occurrence: None)
  Receive Date: 20071022
  Receipt Date: 20071006
  Transmission Date: 20080405
  Serious: Yes (Death)
  Sender: FDA-Public Use
  Company Number: 2007S1000240

PATIENT

DRUGS (4)
  1. CUBICIN [Suspect]
     Indication: ENDOCARDITIS STAPHYLOCOCCAL
     Dosage: 5.5 MG/KG; Q24H;
  2. GANTAMICIN [Concomitant]
  3. VANCOMYCIN [Concomitant]
  4. RIFAMPIN [Concomitant]

REACTIONS (1)
  - DISEASE COMPLICATION [None]
